FAERS Safety Report 8024538-3 (Version None)
Quarter: 2012Q1

REPORT INFORMATION
  Report Type: 
  Country: None (occurrence: None)
  Receive Date: 20120105
  Receipt Date: 20120103
  Transmission Date: 20120608
  Serious: Yes (Hospitalization)
  Sender: FDA-Public Use
  Company Number: PHHY2012AT000446

PATIENT
  Age: 68 Year
  Sex: Male

DRUGS (1)
  1. EXFORGE HCT [Suspect]
     Dosage: UNK
     Dates: start: 20111226

REACTIONS (3)
  - DERMATITIS CONTACT [None]
  - FLUSHING [None]
  - PRURITUS [None]
